FAERS Safety Report 5092001-8 (Version None)
Quarter: 2006Q3

REPORT INFORMATION
  Report Type: 
  Country: None (occurrence: None)
  Receive Date: 20060825
  Receipt Date: 20060808
  Transmission Date: 20061208
  Serious: Yes (Other)
  Sender: FDA-Public Use
  Company Number: DK200608003439

PATIENT
  Age: 83 Year
  Sex: Female

DRUGS (10)
  1. TERIPARATIDE [Suspect]
     Indication: OSTEOPOROSIS
     Dosage: 20 UG, DAILY (1/D),SUBCUTANEOUS
     Route: 058
     Dates: start: 20050225
  2. FORTEO PEN             (FORTEO PEN) [Concomitant]
  3. POTASSIUM CHLORIDE [Concomitant]
  4. MULTITABS                      (FERROUS FUMARATE, MINERALS NOS, VITAMI [Concomitant]
  5. PRIMPERAN TAB [Concomitant]
  6. PREDNISOLONE [Concomitant]
  7. CALCIUM W/VITAMIN D NOS (CALCIUM, VITAMIN D NOS) [Concomitant]
  8. AMLODIPINE [Concomitant]
  9. ACETAMINOPHEN [Concomitant]
  10. LAKTULOSE (LACTULOSE) [Concomitant]

REACTIONS (2)
  - FALL [None]
  - HIP FRACTURE [None]
